FAERS Safety Report 9166921 (Version 2)
Quarter: 2013Q2

REPORT INFORMATION
  Report Type: Spontaneous
  Country: JP (occurrence: JP)
  Receive Date: 20130318
  Receipt Date: 20130405
  Transmission Date: 20140414
  Serious: Yes (Hospitalization)
  Sender: FDA-Public Use
  Company Number: PHHY2013JP024997

PATIENT
  Age: 19 Year
  Sex: Female

DRUGS (4)
  1. CEFEPIME [Suspect]
     Indication: PNEUMONIA
     Dosage: 2 G, QD
  2. MINOCYCLINE [Suspect]
     Indication: PNEUMONIA
     Dosage: 200 MG, UNK
  3. BETAMIPRON W/ PANIPENEM [Concomitant]
     Dosage: 1.5 G, QD
  4. ARBEKACIN [Concomitant]
     Dosage: 300 MG, QD

REACTIONS (4)
  - Vanishing bile duct syndrome [Recovered/Resolved]
  - Hepatic function abnormal [Recovered/Resolved]
  - Jaundice [Recovered/Resolved]
  - Cholestasis [Recovered/Resolved]
